FAERS Safety Report 6318741-8 (Version None)
Quarter: 2009Q3

REPORT INFORMATION
  Report Type: 
  Country: None (occurrence: None)
  Receive Date: 20090821
  Receipt Date: 20090814
  Transmission Date: 20100115
  Serious: Yes (Hospitalization)
  Sender: FDA-Public Use
  Company Number: SE-GENENTECH-288861

PATIENT
  Age: 59 Year
  Sex: Female

DRUGS (9)
  1. MABTHERA [Suspect]
     Indication: THROMBOCYTOPENIA
     Dosage: UNK
     Route: 042
     Dates: start: 20090707, end: 20090714
  2. CALCICHEW D3 [Concomitant]
     Indication: DRUG USE FOR UNKNOWN INDICATION
  3. KONAKION [Concomitant]
     Indication: DRUG USE FOR UNKNOWN INDICATION
  4. DELTISON [Concomitant]
     Indication: DRUG USE FOR UNKNOWN INDICATION
  5. KALEORID [Concomitant]
     Indication: DRUG USE FOR UNKNOWN INDICATION
  6. TENORMIN [Concomitant]
     Indication: DRUG USE FOR UNKNOWN INDICATION
  7. FURIX [Concomitant]
     Indication: DRUG USE FOR UNKNOWN INDICATION
  8. OXASCAND [Concomitant]
     Indication: DRUG USE FOR UNKNOWN INDICATION
  9. KETOGAN NOVUM [Concomitant]
     Indication: DRUG USE FOR UNKNOWN INDICATION

REACTIONS (1)
  - INTERSTITIAL LUNG DISEASE [None]
